FAERS Safety Report 20051857 (Version 1)
Quarter: 2021Q4

REPORT INFORMATION
  Report Type: Spontaneous
  Country: SE (occurrence: None)
  Receive Date: 20211110
  Receipt Date: 20211110
  Transmission Date: 20220303
  Serious: Yes (Other)
  Sender: FDA-Public Use
  Company Number: 2021A796240

PATIENT
  Age: 68 Year
  Sex: Male

DRUGS (1)
  1. ROFLUMILAST [Suspect]
     Active Substance: ROFLUMILAST
     Indication: Chronic obstructive pulmonary disease
     Dosage: 500UG/INHAL DAILY
     Route: 048
     Dates: start: 20210803, end: 20210928

REACTIONS (1)
  - Intention tremor [Recovered/Resolved]

NARRATIVE: CASE EVENT DATE: 20210801
